FAERS Safety Report 8181417-9 (Version None)
Quarter: 2012Q1

REPORT INFORMATION
  Report Type: 
  Country: None (occurrence: None)
  Receive Date: 20120301
  Receipt Date: 20120301
  Transmission Date: 20120608
  Serious: Yes (Other)
  Sender: FDA-Public Use
  Company Number: None

PATIENT
  Sex: Female
  Weight: 53.0709 kg

DRUGS (1)
  1. LEVETIRACETAM [Suspect]
     Indication: CONVULSION
     Dosage: 3 PILLS DAILY P.O.
     Route: 048
     Dates: start: 20120109, end: 20120207

REACTIONS (3)
  - ADVERSE DRUG REACTION [None]
  - HEADACHE [None]
  - PAIN [None]
